FAERS Safety Report 6213801-4 (Version None)
Quarter: 2009Q2

REPORT INFORMATION
  Report Type: 
  Country: None (occurrence: None)
  Receive Date: 20090602
  Receipt Date: 20090522
  Transmission Date: 20091009
  Serious: Yes (Hospitalization, Other)
  Sender: FDA-Public Use
  Company Number: 2009AP002120

PATIENT
  Age: 55 Year
  Sex: Male

DRUGS (5)
  1. TRAMADOL HYDROCHLORIDE [Suspect]
  2. TRAZODONE HYDROCHLORIDE [Suspect]
     Indication: DEPRESSION
  3. TRAZODONE HYDROCHLORIDE [Suspect]
     Indication: INSOMNIA
  4. SERTRALINE HCL [Suspect]
     Indication: DEPRESSION
  5. SERTRALINE HCL [Suspect]
     Indication: INSOMNIA

REACTIONS (13)
  - AMNESIA [None]
  - ARTHRALGIA [None]
  - BLOOD CREATINE PHOSPHOKINASE INCREASED [None]
  - CONDITION AGGRAVATED [None]
  - DELIRIUM [None]
  - DRUG ABUSE [None]
  - HYPERHIDROSIS [None]
  - HYPERREFLEXIA [None]
  - INSOMNIA [None]
  - MYDRIASIS [None]
  - PYREXIA [None]
  - SEROTONIN SYNDROME [None]
  - TACHYCARDIA [None]
